FAERS Safety Report 7656603-4 (Version None)
Quarter: 2011Q3

REPORT INFORMATION
  Report Type: 
  Country: None (occurrence: None)
  Receive Date: 20110804
  Receipt Date: 20110722
  Transmission Date: 20111222
  Serious: Yes (Other)
  Sender: FDA-Public Use
  Company Number: US-SANOFI-AVENTIS-2011SA048416

PATIENT
  Age: 88 Year
  Sex: Male
  Weight: 95 kg

DRUGS (8)
  1. CARVEDIOL [Concomitant]
  2. PRAVASTATIN [Concomitant]
  3. FUROSEMIDE [Concomitant]
  4. METFORMIN HCL [Concomitant]
  5. DRONEDARONE HCL [Suspect]
     Indication: ATRIAL FIBRILLATION
     Route: 048
     Dates: start: 20110218, end: 20110228
  6. TAMSULOSIN HCL [Concomitant]
  7. WARFARIN [Concomitant]
     Dosage: 37.5 MG WEEKLY
  8. INSULIN [Concomitant]

REACTIONS (1)
  - CARDIAC FAILURE [None]
